FAERS Safety Report 25633103 (Version 1)
Quarter: 2025Q3

REPORT INFORMATION
  Report Type: Spontaneous
  Country: EU (occurrence: EU)
  Receive Date: 20250801
  Receipt Date: 20250801
  Transmission Date: 20251021
  Serious: Yes (Other)
  Sender: RANBAXY
  Company Number: EU-SUN PHARMACEUTICAL INDUSTRIES LTD-2025RR-519797

PATIENT
  Age: 64 Year
  Sex: Male
  Weight: 58 kg

DRUGS (1)
  1. GEMCITABINE [Suspect]
     Active Substance: GEMCITABINE
     Indication: Product used for unknown indication
     Route: 040
     Dates: start: 20220411, end: 20220411

REACTIONS (1)
  - Pharyngitis [Recovered/Resolved with Sequelae]

NARRATIVE: CASE EVENT DATE: 20220421
